FAERS Safety Report 4385504-2 (Version None)
Quarter: 2004Q2

REPORT INFORMATION
  Report Type: 
  Country: None (occurrence: None)
  Receive Date: 20040625
  Receipt Date: 20040625
  Transmission Date: 20050107
  Serious: Yes (Hospitalization)
  Sender: FDA-Public Use
  Company Number: None

PATIENT

DRUGS (2)
  1. LAMIVUDINE 150 MG PO BID [Suspect]
  2. NELFINAFIR STAVUDINE 40MG BID [Suspect]
     Dosage: 1250 MG BID

REACTIONS (1)
  - PANCREATITIS [None]
